FAERS Safety Report 20624368 (Version 14)
Quarter: 2023Q2

REPORT INFORMATION
  Report Type: Spontaneous
  Country: BR (occurrence: BR)
  Receive Date: 20220322
  Receipt Date: 20230608
  Transmission Date: 20230721
  Serious: Yes (Disabling, Other)
  Sender: FDA-Public Use
  Company Number: BR-SA-SAC20220317001381

PATIENT
  Age: 78 Year
  Sex: Female
  Weight: 110 kg

DRUGS (15)
  1. LANTUS [Suspect]
     Active Substance: INSULIN GLARGINE
     Indication: Diabetes mellitus
     Dosage: UNK
     Dates: start: 2007
  2. LANTUS [Suspect]
     Active Substance: INSULIN GLARGINE
     Dosage: AT NIGHT SHE APPLIED 30IU, BID
     Dates: start: 202201
  3. LANTUS [Suspect]
     Active Substance: INSULIN GLARGINE
     Dosage: 60 IU, QD
     Dates: start: 2022
  4. LANTUS [Suspect]
     Active Substance: INSULIN GLARGINE
     Dosage: UNK, Q12H (60U IN THE MORNING AND 10 AT NIGHT)
     Route: 030
  5. LANTUS [Suspect]
     Active Substance: INSULIN GLARGINE
     Dosage: UNK, BID (20 UNITS IN THE MORNING AND 10 UNITS AT NIGHT)
  6. APIDRA [Suspect]
     Active Substance: INSULIN GLULISINE
     Indication: Product used for unknown indication
     Dosage: UNK
  7. COVID-19 VACCINE NOS [Suspect]
     Active Substance: COVID-19 VACCINE NOS
     Indication: Immunisation
  8. VECASTEN [MELILOTUS OFFICINALIS EXTRACT] [Concomitant]
     Dosage: UNK
  9. OMEPRAZOLE [Concomitant]
     Active Substance: OMEPRAZOLE
     Indication: Abdominal discomfort
     Dosage: UNK (1 OR 2 TABLETS A DAY )
  10. PURAN [Concomitant]
     Active Substance: LEVOTHYROXINE SODIUM
     Indication: Thyroid disorder
     Dosage: UNK (1 TIME A DAY ON AN EMPTY STOMACH)
     Dates: start: 2003
  11. BUTYLSCOPOLAMINE BROMIDE [Concomitant]
     Active Substance: BUTYLSCOPOLAMINE BROMIDE
     Indication: Abdominal pain upper
     Dosage: UNK (1 OR 2 TABLETS A DAY)
     Route: 048
     Dates: start: 2003
  12. DIAZEPAM [Concomitant]
     Active Substance: DIAZEPAM
     Dosage: UNK
  13. ATENOLOL [Concomitant]
     Active Substance: ATENOLOL
     Indication: Blood pressure measurement
     Dosage: 50 MG, Q12H (2 TIMES A DAY 1 IN THE MORNING AND 1 IN THE EVENING)
     Route: 048
     Dates: start: 2017
  14. EPOCLER [Concomitant]
     Indication: Liver disorder
     Dosage: UNK (1 OR 2 TABLETS A DAY)
     Route: 048
     Dates: start: 2003
  15. LUFTAL [SIMETICONE] [Concomitant]
     Indication: Flatulence
     Dosage: 1 OR 2 DEPENDING ON HOW THE STOMACH IS
     Route: 048

REACTIONS (51)
  - Diplegia [Not Recovered/Not Resolved]
  - Syncope [Unknown]
  - Blindness [Unknown]
  - Near death experience [Not Recovered/Not Resolved]
  - Erythema [Recovering/Resolving]
  - Dry mouth [Not Recovered/Not Resolved]
  - Nausea [Not Recovered/Not Resolved]
  - Tremor [Not Recovered/Not Resolved]
  - Bedridden [Not Recovered/Not Resolved]
  - Diarrhoea [Not Recovered/Not Resolved]
  - Urinary retention [Not Recovered/Not Resolved]
  - Vulvovaginal pruritus [Not Recovered/Not Resolved]
  - Erythema [Not Recovered/Not Resolved]
  - Peripheral swelling [Unknown]
  - Malaise [Not Recovered/Not Resolved]
  - Eating disorder [Not Recovered/Not Resolved]
  - Abdominal pain upper [Not Recovered/Not Resolved]
  - Motion sickness [Not Recovered/Not Resolved]
  - Asthenia [Not Recovered/Not Resolved]
  - Hypertension [Not Recovered/Not Resolved]
  - Dizziness [Not Recovered/Not Resolved]
  - Abdominal discomfort [Not Recovered/Not Resolved]
  - Feeling abnormal [Not Recovered/Not Resolved]
  - Arthropathy [Not Recovered/Not Resolved]
  - Abdominal discomfort [Unknown]
  - Diarrhoea [Not Recovered/Not Resolved]
  - Flatulence [Not Recovered/Not Resolved]
  - Gait disturbance [Not Recovered/Not Resolved]
  - Condition aggravated [Not Recovered/Not Resolved]
  - Dyspepsia [Not Recovered/Not Resolved]
  - Hepatic pain [Not Recovered/Not Resolved]
  - Insomnia [Not Recovered/Not Resolved]
  - Anal inflammation [Not Recovered/Not Resolved]
  - Multi-organ disorder [Not Recovered/Not Resolved]
  - Vulvovaginal inflammation [Not Recovered/Not Resolved]
  - Headache [Not Recovered/Not Resolved]
  - Functional gastrointestinal disorder [Not Recovered/Not Resolved]
  - Neck pain [Not Recovered/Not Resolved]
  - Balance disorder [Not Recovered/Not Resolved]
  - Emotional distress [Not Recovered/Not Resolved]
  - Memory impairment [Not Recovered/Not Resolved]
  - Weight increased [Not Recovered/Not Resolved]
  - Pruritus [Not Recovered/Not Resolved]
  - Injection site pain [Unknown]
  - Drug hypersensitivity [Unknown]
  - Blood glucose increased [Not Recovered/Not Resolved]
  - Product physical consistency issue [Unknown]
  - Drug ineffective [Unknown]
  - Product prescribing error [Unknown]
  - Inappropriate schedule of product administration [Unknown]
  - Incorrect route of product administration [Unknown]

NARRATIVE: CASE EVENT DATE: 20210101
